FAERS Safety Report 6251894-9 (Version None)
Quarter: 2009Q2

REPORT INFORMATION
  Report Type: 
  Country: None (occurrence: None)
  Receive Date: 20090630
  Receipt Date: 20090619
  Transmission Date: 20091009
  Serious: Yes (Death)
  Sender: FDA-Public Use
  Company Number: VN-BAXTER-2009BH010333

PATIENT
  Sex: Female

DRUGS (1)
  1. DIANEAL [Suspect]
     Indication: RENAL FAILURE CHRONIC
     Route: 033
     Dates: start: 20080819

REACTIONS (3)
  - CARDIAC FAILURE [None]
  - DIARRHOEA [None]
  - HYPOTENSION [None]
